FAERS Safety Report 5065435-5 (Version None)
Quarter: 2006Q3

REPORT INFORMATION
  Report Type: 
  Country: None (occurrence: None)
  Receive Date: 20060731
  Receipt Date: 20060531
  Transmission Date: 20061208
  Serious: Yes (Other)
  Sender: FDA-Public Use
  Company Number: PHEH2006US07178

PATIENT
  Age: 3 Year
  Sex: Male
  Weight: 16.326 kg

DRUGS (4)
  1. ELIDEL [Suspect]
     Dosage: UNK, BID
     Route: 061
  2. ALBUTEROL SPIROS [Concomitant]
  3. PULMICORT [Concomitant]
  4. FLONASE [Concomitant]

REACTIONS (2)
  - B-CELL LYMPHOMA [None]
  - LYMPHADENOPATHY [None]
